FAERS Safety Report 19834966 (Version 2)
Quarter: 2021Q4

REPORT INFORMATION
  Report Type: Spontaneous
  Country: US (occurrence: US)
  Receive Date: 20210915
  Receipt Date: 20211008
  Transmission Date: 20220303
  Serious: No
  Sender: FDA-Public Use
  Company Number: US-AMGEN-USASP2021139926

PATIENT
  Age: 13 Year
  Sex: Male
  Weight: 91.3 kg

DRUGS (12)
  1. NPLATE [Suspect]
     Active Substance: ROMIPLOSTIM
     Indication: Immune thrombocytopenia
     Dosage: 159 MICROGRAM
     Route: 058
     Dates: start: 20160616
  2. NPLATE [Suspect]
     Active Substance: ROMIPLOSTIM
     Dosage: 150 MICROGRAM
     Route: 058
  3. NPLATE [Suspect]
     Active Substance: ROMIPLOSTIM
     Dosage: 250 MICROGRAM
     Route: 058
     Dates: start: 20210719
  4. NPLATE [Suspect]
     Active Substance: ROMIPLOSTIM
     Dosage: 261 UNK
     Route: 058
     Dates: start: 20210729
  5. NPLATE [Suspect]
     Active Substance: ROMIPLOSTIM
     Dosage: 200 MICROGRAM
     Route: 058
     Dates: start: 20210804
  6. NPLATE [Suspect]
     Active Substance: ROMIPLOSTIM
     Dosage: 300 MICROGRAM
     Route: 058
     Dates: start: 20210811
  7. NPLATE [Suspect]
     Active Substance: ROMIPLOSTIM
     Dosage: 300 MICROGRAM (REPEATED)
     Route: 058
     Dates: start: 20210817
  8. NPLATE [Suspect]
     Active Substance: ROMIPLOSTIM
     Dosage: 350 MICROGRAM (REPEATED)
     Route: 058
     Dates: start: 20210825
  9. NPLATE [Suspect]
     Active Substance: ROMIPLOSTIM
     Dosage: 350 MICROGRAM (REPEATED)
     Route: 058
     Dates: start: 20210901
  10. NPLATE [Suspect]
     Active Substance: ROMIPLOSTIM
     Dosage: 400 MICROGRAM
     Route: 058
     Dates: start: 20210908
  11. NPLATE [Suspect]
     Active Substance: ROMIPLOSTIM
     Dosage: 550 MICROGRAM, QWK
     Route: 058
  12. RITUXAN [Concomitant]
     Active Substance: RITUXIMAB

REACTIONS (3)
  - COVID-19 [Unknown]
  - Therapeutic product effect decreased [Unknown]
  - Platelet count abnormal [Unknown]

NARRATIVE: CASE EVENT DATE: 20210101
